FAERS Safety Report 14466604 (Version 1)
Quarter: 2018Q1

REPORT INFORMATION
  Report Type: Report from Study
  Country: US (occurrence: US)
  Receive Date: 20180131
  Receipt Date: 20180131
  Transmission Date: 20180509
  Serious: No
  Sender: FDA-Public Use
  Company Number: US-AMGEN-USASL2018011631

PATIENT
  Age: 54 Year
  Sex: Female

DRUGS (1)
  1. ENBREL [Suspect]
     Active Substance: ETANERCEPT
     Indication: RHEUMATOID ARTHRITIS
     Dosage: 50 MG, QWK
     Route: 065
     Dates: start: 201712

REACTIONS (4)
  - Musculoskeletal disorder [Not Recovered/Not Resolved]
  - Injection site haemorrhage [Unknown]
  - Drug effect incomplete [Unknown]
  - Underdose [Unknown]

NARRATIVE: CASE EVENT DATE: 20180125
